FAERS Safety Report 16913831 (Version 1)
Quarter: 2019Q4

REPORT INFORMATION
  Report Type: Spontaneous
  Country: FR (occurrence: FR)
  Receive Date: 20191014
  Receipt Date: 20191014
  Transmission Date: 20200122
  Serious: Yes (Other)
  Sender: FDA-Public Use
  Company Number: FR-PFIZER INC-2019435573

PATIENT
  Age: 46 Year
  Sex: Female

DRUGS (1)
  1. XANAX [Suspect]
     Active Substance: ALPRAZOLAM
     Dosage: 30 DF, SINGLE
     Route: 048
     Dates: start: 20180819, end: 20180819

REACTIONS (2)
  - Altered state of consciousness [Recovered/Resolved]
  - Chemical submission [Recovered/Resolved]
